FAERS Safety Report 6010006-7 (Version None)
Quarter: 2008Q4

REPORT INFORMATION
  Report Type: 
  Country: None (occurrence: None)
  Receive Date: 20081218
  Receipt Date: 20081208
  Transmission Date: 20090506
  Serious: Yes (Life-Threatening, Hospitalization)
  Sender: FDA-Public Use
  Company Number: JP-PFIZER INC-2008152958

PATIENT

DRUGS (7)
  1. SUNITINIB MALATE [Suspect]
     Indication: RENAL CELL CARCINOMA
     Dosage: 50 MG, 1X/DAY
     Route: 048
     Dates: start: 20080903, end: 20080924
  2. SUNITINIB MALATE [Suspect]
     Dosage: 37.5 MG, 1X/DAY
     Dates: start: 20080925
  3. LEVOTHYROXINE SODIUM [Concomitant]
     Dosage: UNK
     Route: 048
  4. CIMETIDINE [Concomitant]
     Dosage: UNK
     Route: 048
     Dates: start: 20070403
  5. CEFMETAZON [Concomitant]
     Route: 042
     Dates: start: 20080908, end: 20080911
  6. ADALAT CC [Concomitant]
     Dosage: UNK
     Route: 048
     Dates: start: 20080919
  7. GARASONE [Concomitant]
     Dosage: UNK
     Route: 062
     Dates: start: 20080913

REACTIONS (2)
  - PLEURAL EFFUSION [None]
  - WHITE BLOOD CELL COUNT DECREASED [None]
